FAERS Safety Report 6753717-8 (Version None)
Quarter: 2010Q2

REPORT INFORMATION
  Report Type: 
  Country: None (occurrence: None)
  Receive Date: 20100520
  Receipt Date: 20091014
  Transmission Date: 20101027
  Serious: Yes (Disabling, Other)
  Sender: FDA-Public Use
  Company Number: 2009193752

PATIENT
  Age: 59 Year
  Sex: Female

DRUGS (4)
  1. PROVERA [Suspect]
     Indication: HORMONE REPLACEMENT THERAPY
     Dosage: 2.5.5 MG, ORAL
     Route: 048
     Dates: start: 19941213, end: 19980924
  2. PREMPRO [Suspect]
     Indication: HORMONE REPLACEMENT THERAPY
     Dosage: 0.625/2.5 MG
     Dates: start: 19990612, end: 20011016
  3. ESTRACE [Suspect]
     Indication: HORMONE REPLACEMENT THERAPY
     Dosage: 1 MG
     Dates: start: 19941213, end: 19980924
  4. CLOMID [Suspect]
     Indication: HORMONE REPLACEMENT THERAPY
     Dosage: 50 MG

REACTIONS (1)
  - BREAST CANCER FEMALE [None]
